FAERS Safety Report 10047388 (Version 1)
Quarter: 2014Q1

REPORT INFORMATION
  Report Type: Spontaneous
  Country: GB (occurrence: None)
  Receive Date: 20140327
  Receipt Date: 20140327
  Transmission Date: 20141002
  Serious: Yes (Life-Threatening)
  Sender: FDA-Public Use
  Company Number: AUR-APL-2014-03634

PATIENT
  Age: 91 Year
  Sex: Male

DRUGS (7)
  1. FLUOXETINE (FLUOXETINE) [Suspect]
     Indication: DEPRESSION
     Route: 048
     Dates: start: 2010, end: 201403
  2. ASPIRIN (ACETYSALICYLIC ACID) [Concomitant]
  3. ATORVASTATIN (ATORVASTATIN) [Concomitant]
  4. FUROSEMIDE (FUROSEMIDE) [Concomitant]
  5. GLICAZIDE (GLICLAZIDE) [Concomitant]
  6. RAMIPRIL (RAMIPRIL) [Concomitant]
  7. SPIRONOLACTONE (SPIRONOLACTONE) [Concomitant]

REACTIONS (4)
  - Cardiac arrest [None]
  - Electrocardiogram QT prolonged [None]
  - Ventricular fibrillation [None]
  - Electrocardiogram QT prolonged [None]
